FAERS Safety Report 12518196 (Version 6)
Quarter: 2020Q1

REPORT INFORMATION
  Report Type: Report from Study
  Country: IT (occurrence: IT)
  Receive Date: 20160630
  Receipt Date: 20200210
  Transmission Date: 20200409
  Serious: Yes (Hospitalization)
  Sender: FDA-Public Use
  Company Number: IT-SA-2016SA119191

PATIENT
  Age: 27 Year
  Sex: Male
  Weight: 71 kg

DRUGS (10)
  1. OMEPRAZOLE. [Concomitant]
     Active Substance: OMEPRAZOLE
     Dosage: 20 MG,QD
     Route: 048
     Dates: start: 20160620, end: 20160622
  2. ALEMTUZUMAB [Suspect]
     Active Substance: ALEMTUZUMAB
     Indication: RELAPSING MULTIPLE SCLEROSIS
     Dosage: 10.5 MG, QD
     Route: 041
     Dates: start: 20160620, end: 20160620
  3. ALEMTUZUMAB [Suspect]
     Active Substance: ALEMTUZUMAB
     Dosage: 12 MG,QD
     Route: 041
     Dates: start: 20160621, end: 20160622
  4. ZANTAC [Concomitant]
     Active Substance: RANITIDINE HYDROCHLORIDE
     Dosage: 50 MG,UNK
     Route: 065
  5. PARACETAMOL [Concomitant]
     Active Substance: ACETAMINOPHEN
     Indication: PROPHYLAXIS
     Dosage: 1000 MG,QD
     Route: 048
     Dates: start: 20160620, end: 20160622
  6. ALEMTUZUMAB [Suspect]
     Active Substance: ALEMTUZUMAB
     Dosage: 12 MG, QD
     Route: 041
     Dates: start: 20150615, end: 20150619
  7. NICETILE [Concomitant]
     Active Substance: LEVACECARNINE HYDROCHLORIDE
     Indication: MULTIPLE SCLEROSIS
     Dosage: 500 MG,QD
     Route: 048
     Dates: start: 201604
  8. ZOVIRAX [Concomitant]
     Active Substance: ACYCLOVIR
     Indication: PROPHYLAXIS
     Dosage: 400 MG,QD
     Route: 048
     Dates: start: 20160620
  9. METHYLPREDNISOLONE. [Concomitant]
     Active Substance: METHYLPREDNISOLONE
     Indication: PROPHYLAXIS
     Dosage: 1000 MG,QD
     Route: 042
     Dates: start: 20160620, end: 20160622
  10. TRIMETON [SULFAMETHOXAZOLE;TRIMETHOPRIM] [Concomitant]
     Indication: PROPHYLAXIS
     Dosage: 10 MG,QD
     Route: 030
     Dates: start: 20160620, end: 20160622

REACTIONS (5)
  - Cytokine release syndrome [Recovered/Resolved]
  - Electrocardiogram ST segment elevation [Recovered/Resolved]
  - Bundle branch block right [Recovered/Resolved]
  - Depression [Not Recovered/Not Resolved]
  - Multiple sclerosis relapse [Recovered/Resolved]

NARRATIVE: CASE EVENT DATE: 20160620
